FAERS Safety Report 11464843 (Version 1)
Quarter: 2015Q3

REPORT INFORMATION
  Report Type: Spontaneous
  Country: US (occurrence: US)
  Receive Date: 20150906
  Receipt Date: 20150906
  Transmission Date: 20151125
  Serious: No
  Sender: FDA-Public Use
  Company Number: US-009507513-1508USA010510

PATIENT
  Age: 18 Year
  Sex: Female
  Weight: 49.89 kg

DRUGS (1)
  1. NEXPLANON [Suspect]
     Active Substance: ETONOGESTREL
     Indication: CONTRACEPTION
     Dosage: UNK
     Route: 059
     Dates: start: 20140213

REACTIONS (5)
  - Implant site hypoaesthesia [Unknown]
  - Implant site paraesthesia [Unknown]
  - Medical device complication [Not Recovered/Not Resolved]
  - Muscle spasms [Unknown]
  - Implant site swelling [Recovered/Resolved]

NARRATIVE: CASE EVENT DATE: 20150821
